FAERS Safety Report 10300647 (Version 29)
Quarter: 2016Q3

REPORT INFORMATION
  Report Type: Report from Study
  Country: CA (occurrence: CA)
  Receive Date: 20140714
  Receipt Date: 20160824
  Transmission Date: 20161109
  Serious: Yes (Other)
  Sender: FDA-Public Use
  Company Number: CA-ROCHE-1284186

PATIENT
  Age: 45 Year
  Sex: Female
  Weight: 90 kg

DRUGS (13)
  1. TYLENOL [Concomitant]
     Active Substance: ACETAMINOPHEN
  2. DIPHENHYDRAMINE HCL [Concomitant]
     Active Substance: DIPHENHYDRAMINE HYDROCHLORIDE
     Indication: PREMEDICATION
     Route: 048
     Dates: start: 20130318, end: 20131015
  3. XELJANZ [Concomitant]
     Active Substance: TOFACITINIB CITRATE
     Route: 065
     Dates: start: 201507
  4. ADALAT [Suspect]
     Active Substance: NIFEDIPINE
     Indication: HYPERTENSION
     Route: 065
     Dates: end: 201309
  5. METHYLPREDNISOLONE. [Concomitant]
     Active Substance: METHYLPREDNISOLONE
     Indication: PREMEDICATION
     Route: 042
     Dates: start: 20130318, end: 20131015
  6. PREDNISONE. [Concomitant]
     Active Substance: PREDNISONE
  7. TWYNSTA [Concomitant]
     Active Substance: AMLODIPINE BESYLATE\TELMISARTAN
  8. ACTEMRA [Suspect]
     Active Substance: TOCILIZUMAB
     Indication: RHEUMATOID ARTHRITIS
     Route: 042
     Dates: start: 20140806
  9. RITUXAN [Suspect]
     Active Substance: RITUXIMAB
     Indication: RHEUMATOID ARTHRITIS
     Dosage: DAY 1 AND DAY 15
     Route: 042
     Dates: start: 20130318, end: 20131015
  10. ACETAMINOPHEN. [Concomitant]
     Active Substance: ACETAMINOPHEN
     Indication: PREMEDICATION
     Route: 048
     Dates: start: 20130318, end: 20131015
  11. OMEPRAZOLE. [Concomitant]
     Active Substance: OMEPRAZOLE
  12. ACTEMRA [Suspect]
     Active Substance: TOCILIZUMAB
     Route: 042
     Dates: start: 20151217, end: 20160706
  13. LEFLUNOMIDE. [Concomitant]
     Active Substance: LEFLUNOMIDE

REACTIONS (20)
  - Dyspepsia [Recovering/Resolving]
  - Headache [Unknown]
  - Upper respiratory tract infection [Recovered/Resolved]
  - Cough [Recovering/Resolving]
  - Oxygen saturation decreased [Unknown]
  - Oxygen saturation decreased [Unknown]
  - Tooth infection [Not Recovered/Not Resolved]
  - Renal pain [Not Recovered/Not Resolved]
  - Hypertension [Unknown]
  - Syncope [Recovered/Resolved]
  - Blood pressure increased [Unknown]
  - Pain in extremity [Unknown]
  - Blood pressure inadequately controlled [Recovered/Resolved]
  - Weight increased [Not Recovered/Not Resolved]
  - Tinnitus [Recovered/Resolved]
  - Hypoaesthesia [Recovered/Resolved]
  - Nasopharyngitis [Not Recovered/Not Resolved]
  - Helicobacter infection [Unknown]
  - Nasopharyngitis [Recovered/Resolved]
  - Lower respiratory tract infection [Unknown]

NARRATIVE: CASE EVENT DATE: 20140707
